FAERS Safety Report 14188502 (Version 2)
Quarter: 2018Q4

REPORT INFORMATION
  Report Type: Spontaneous
  Country: US (occurrence: US)
  Receive Date: 20171114
  Receipt Date: 20181205
  Transmission Date: 20190204
  Serious: Yes (Other)
  Sender: FDA-Public Use
  Company Number: US-BAUSCH-BL-2017-014970

PATIENT
  Sex: Female

DRUGS (6)
  1. APRISO [Suspect]
     Active Substance: MESALAMINE
     Dosage: 6 CAPSULES PER DAY
     Route: 048
     Dates: start: 2017
  2. OMEPRAZOLE. [Concomitant]
     Active Substance: OMEPRAZOLE
     Indication: PRODUCT USED FOR UNKNOWN INDICATION
     Route: 048
  3. APRISO [Suspect]
     Active Substance: MESALAMINE
     Dosage: 8 CAPSULES PER DAY
     Route: 065
  4. APRISO [Suspect]
     Active Substance: MESALAMINE
     Dosage: 7 CAPSULES PER DAY
     Route: 048
  5. LIALDA [Concomitant]
     Active Substance: MESALAMINE
     Indication: PRODUCT USED FOR UNKNOWN INDICATION
     Route: 048
  6. APRISO [Suspect]
     Active Substance: MESALAMINE
     Indication: COLITIS ULCERATIVE
     Dosage: 4 CAPSULES PER DAY
     Route: 048
     Dates: start: 2010

REACTIONS (5)
  - Upper-airway cough syndrome [Not Recovered/Not Resolved]
  - Sinusitis [Not Recovered/Not Resolved]
  - Neuropathy peripheral [Not Recovered/Not Resolved]
  - Overdose [Unknown]
  - Drug effect incomplete [Unknown]

NARRATIVE: CASE EVENT DATE: 2010
